FAERS Safety Report 6676313-X (Version None)
Quarter: 2010Q2

REPORT INFORMATION
  Report Type: 
  Country: None (occurrence: None)
  Receive Date: 20100412
  Receipt Date: 20100329
  Transmission Date: 20101027
  Serious: Yes (Hospitalization)
  Sender: FDA-Public Use
  Company Number: JP-SANOFI-AVENTIS-2010SA012791

PATIENT
  Age: 63 Year
  Sex: Female
  Weight: 48.3 kg

DRUGS (15)
  1. ENOXAPARIN SODIUM [Suspect]
     Indication: KNEE ARTHROPLASTY
     Route: 058
     Dates: start: 20091120, end: 20091125
  2. ENOXAPARIN SODIUM [Suspect]
     Indication: THROMBOSIS PROPHYLAXIS
     Route: 058
     Dates: start: 20091120, end: 20091125
  3. PREDNISOLONE [Concomitant]
     Indication: RHEUMATOID ARTHRITIS
     Route: 048
     Dates: start: 20051212
  4. TAKEPRON [Concomitant]
     Indication: RHEUMATOID ARTHRITIS
     Route: 048
     Dates: start: 20051212
  5. MUCOSTA [Concomitant]
     Indication: RHEUMATOID ARTHRITIS
     Route: 048
     Dates: start: 20051212
  6. VOLTAREN - SLOW RELEASE ^NOVARTIS^ [Concomitant]
     Indication: RHEUMATOID ARTHRITIS
     Route: 048
     Dates: start: 20051212
  7. RHEUMATREX [Concomitant]
     Indication: RHEUMATOID ARTHRITIS
     Dosage: 8 MG/WEEK
     Route: 048
     Dates: start: 20051212
  8. FOLIC ACID [Concomitant]
     Indication: RHEUMATOID ARTHRITIS
     Route: 048
     Dates: start: 20051212
  9. FERRUM HAUSMANN CAPSULE ^VIFOR^ [Concomitant]
  10. VOLTAREN [Concomitant]
  11. VEEN-F [Concomitant]
  12. FLUMARIN [Concomitant]
     Route: 041
     Dates: start: 20091118, end: 20091125
  13. GLUCOSE/SODIUM CHLORIDE/SODIUM LACTATE [Concomitant]
  14. ATROPINE SULFATE [Concomitant]
  15. DORMICUM ROCHE [Concomitant]

REACTIONS (2)
  - HEPATIC FUNCTION ABNORMAL [None]
  - MALAISE [None]
